FAERS Safety Report 7195565-3 (Version None)
Quarter: 2010Q4

REPORT INFORMATION
  Report Type: 
  Country: None (occurrence: None)
  Receive Date: 20101223
  Receipt Date: 20101005
  Transmission Date: 20110411
  Serious: No
  Sender: FDA-Public Use
  Company Number: US-AMGEN-KDL439068

PATIENT

DRUGS (6)
  1. ENBREL [Suspect]
     Indication: PSORIATIC ARTHROPATHY
     Dosage: 50 MG, 2 TIMES/WK
     Route: 058
     Dates: start: 20100818
  2. LEVOTHYROXINE SODIUM [Concomitant]
     Dosage: 100 MG, QD
     Route: 048
     Dates: start: 19800101
  3. LORATADINE [Concomitant]
     Dosage: 10 MG, QD
     Route: 048
     Dates: start: 20100101
  4. NAPROXEN SODIUM [Concomitant]
     Dosage: 220 MG, QD
     Route: 048
     Dates: start: 20050101
  5. BLACK COHOSH [Concomitant]
     Dosage: UNK UNK, QD
     Route: 048
     Dates: start: 20040801
  6. COLECALCIFEROL [Concomitant]
     Dosage: 1000 IU, QD
     Route: 048
     Dates: start: 20100801

REACTIONS (12)
  - DEVICE DIFFICULT TO USE [None]
  - INJECTION SITE DISCOLOURATION [None]
  - INJECTION SITE DISCOMFORT [None]
  - INJECTION SITE ERYTHEMA [None]
  - INJECTION SITE HAEMATOMA [None]
  - INJECTION SITE INDURATION [None]
  - INJECTION SITE PAIN [None]
  - INJECTION SITE PRURITUS [None]
  - INJECTION SITE REACTION [None]
  - INJECTION SITE WARMTH [None]
  - PRURITUS [None]
  - SKIN INFECTION [None]
